FAERS Safety Report 8831516 (Version 6)
Quarter: 2013Q4

REPORT INFORMATION
  Report Type: Spontaneous
  Country: US (occurrence: US)
  Receive Date: 20121009
  Receipt Date: 20131218
  Transmission Date: 20140711
  Serious: Yes (Hospitalization, Disabling, Other)
  Sender: FDA-Public Use
  Company Number: US-009507513-1210USA002354

PATIENT
  Sex: Female
  Weight: 49.89 kg

DRUGS (1)
  1. NUVARING [Suspect]
     Indication: CONTRACEPTION
     Dosage: UNK
     Route: 067
     Dates: start: 20070531, end: 200810

REACTIONS (11)
  - Pulmonary embolism [Not Recovered/Not Resolved]
  - Headache [Recovered/Resolved]
  - Vulvitis [Unknown]
  - Breast calcifications [Unknown]
  - Vision blurred [Unknown]
  - Dizziness [Unknown]
  - Nausea [Unknown]
  - Cough [Recovered/Resolved]
  - Insomnia [Unknown]
  - Sleep apnoea syndrome [Unknown]
  - Haemangioma of liver [Unknown]
